FAERS Safety Report 25335147 (Version 2)
Quarter: 2025Q3

REPORT INFORMATION
  Report Type: Report from Study
  Country: CA (occurrence: CA)
  Receive Date: 20250520
  Receipt Date: 20250702
  Transmission Date: 20251020
  Serious: Yes (Other)
  Sender: SAMSUNG BIOEPIS
  Company Number: CA-SAMSUNG BIOEPIS-SB-2025-17456

PATIENT
  Age: 50 Year
  Sex: Male

DRUGS (1)
  1. RENFLEXIS [Suspect]
     Active Substance: INFLIXIMAB-ABDA
     Indication: Ankylosing spondylitis
     Route: 042
     Dates: start: 20240521

REACTIONS (8)
  - Skin lesion [Unknown]
  - Post procedural complication [Unknown]
  - Perirectal abscess [Unknown]
  - Crohn^s disease [Unknown]
  - Infection [Unknown]
  - Wound [Unknown]
  - Anorectal infection [Unknown]
  - Off label use [Unknown]

NARRATIVE: CASE EVENT DATE: 20240521
